FAERS Safety Report 15508050 (Version 2)
Quarter: 2019Q4

REPORT INFORMATION
  Report Type: Spontaneous
  Country: US (occurrence: US)
  Receive Date: 20181016
  Receipt Date: 20191121
  Transmission Date: 20200122
  Serious: No
  Sender: FDA-Public Use
  Company Number: US-PFIZER INC-2018409692

PATIENT
  Age: 66 Year
  Sex: Female

DRUGS (2)
  1. SOMAVERT [Suspect]
     Active Substance: PEGVISOMANT
     Dosage: 30 MG, DAILY
  2. SOMAVERT [Suspect]
     Active Substance: PEGVISOMANT
     Dosage: 15 MG, UNK
     Dates: start: 20191112

REACTIONS (1)
  - Insulin-like growth factor increased [Unknown]
